FAERS Safety Report 14416150 (Version 3)
Quarter: 2018Q1

REPORT INFORMATION
  Report Type: Report from Study
  Country: None (occurrence: ES)
  Receive Date: 20180122
  Receipt Date: 20180125
  Transmission Date: 20180509
  Serious: Yes (Death, Hospitalization)
  Sender: FDA-Public Use
  Company Number: ES-ABBVIE-18K-144-2229620-00

PATIENT
  Age: 67 Year
  Sex: Female
  Weight: 170 kg

DRUGS (1)
  1. DUODOPA [Suspect]
     Active Substance: CARBIDOPA\LEVODOPA
     Indication: PARKINSON^S DISEASE
     Route: 050
     Dates: start: 20080601

REACTIONS (11)
  - Urinary tract infection [Not Recovered/Not Resolved]
  - Food intolerance [Recovered/Resolved]
  - Dyskinesia [Recovered/Resolved]
  - Metastatic uterine cancer [Fatal]
  - Stoma site extravasation [Unknown]
  - Stoma site irritation [Recovered/Resolved]
  - Cognitive disorder [Unknown]
  - Granuloma [Recovered/Resolved]
  - Stoma site pain [Unknown]
  - Embedded device [Recovered/Resolved]
  - Vomiting [Recovered/Resolved]

NARRATIVE: CASE EVENT DATE: 201604
